FAERS Safety Report 6714243-5 (Version None)
Quarter: 2010Q2

REPORT INFORMATION
  Report Type: 
  Country: None (occurrence: None)
  Receive Date: 20100506
  Receipt Date: 20090326
  Transmission Date: 20101027
  Serious: No
  Sender: FDA-Public Use
  Company Number: US-BAUSCH-2009BL001351

PATIENT
  Age: 57 Year
  Sex: Female
  Weight: 54 kg

DRUGS (4)
  1. LOTEMAX [Suspect]
     Indication: CONJUNCTIVITIS
     Route: 047
     Dates: start: 20090324, end: 20090324
  2. ZYMAR [Concomitant]
     Indication: CONJUNCTIVITIS
     Route: 047
     Dates: start: 20090324
  3. MULTI-VITAMINS [Concomitant]
  4. CALCIUM [Concomitant]

REACTIONS (3)
  - EYE PAIN [None]
  - SINUS HEADACHE [None]
  - SWELLING [None]
